FAERS Safety Report 26127331 (Version 1)
Quarter: 2025Q4

REPORT INFORMATION
  Report Type: Spontaneous
  Country: US (occurrence: US)
  Receive Date: 20251205
  Receipt Date: 20251205
  Transmission Date: 20260118
  Serious: No
  Sender: PFIZER
  Company Number: US-PFIZER INC-202500196026

PATIENT
  Age: 74 Year
  Sex: Female

DRUGS (6)
  1. BRAFTOVI [Suspect]
     Active Substance: ENCORAFENIB
     Indication: Colon cancer metastatic
     Dosage: 300 MG (75 MG TAKE 4 CAPSULES (300 MG))
     Route: 048
  2. BRAFTOVI [Suspect]
     Active Substance: ENCORAFENIB
     Dosage: 75 MG, 1X/DAY (REDUCED THE NUMBER OF PILLS TO ONE A DAY)
     Route: 048
  3. CETUXIMAB [Concomitant]
     Active Substance: CETUXIMAB
     Dosage: 500
  4. FLUOROURACIL [Concomitant]
     Active Substance: FLUOROURACIL
     Dosage: 400/2400
  5. LEUCOVORIN [Concomitant]
     Active Substance: LEUCOVORIN\LEUCOVORIN CALCIUM
     Dosage: 400
  6. IRINOTECAN [Concomitant]
     Active Substance: IRINOTECAN
     Dosage: 180

REACTIONS (2)
  - Illness [Unknown]
  - Intentional product use issue [Unknown]
